FAERS Safety Report 4929308-8 (Version None)
Quarter: 2006Q1

REPORT INFORMATION
  Report Type: 
  Country: None (occurrence: None)
  Receive Date: 20060301
  Receipt Date: 20060125
  Transmission Date: 20060701
  Serious: Yes (Hospitalization)
  Sender: FDA-Public Use
  Company Number: US-BRISTOL-MYERS SQUIBB COMPANY-13260922

PATIENT
  Age: 56 Year
  Sex: Male

DRUGS (15)
  1. CETUXIMAB [Suspect]
     Indication: NON-SMALL CELL LUNG CANCER
     Route: 042
     Dates: start: 20060120, end: 20060120
  2. CARBOPLATIN [Suspect]
     Indication: NON-SMALL CELL LUNG CANCER
     Route: 042
     Dates: start: 20060120, end: 20060120
  3. PACLITAXEL [Suspect]
     Indication: NON-SMALL CELL LUNG CANCER
     Route: 042
     Dates: start: 20060120, end: 20060120
  4. PROCRIT [Concomitant]
     Indication: ANAEMIA
     Route: 058
     Dates: start: 20051230
  5. MAGNESIUM OXIDE [Concomitant]
     Indication: BLOOD MAGNESIUM DECREASED
     Route: 048
     Dates: start: 20051214
  6. BENADRYL [Concomitant]
     Indication: PRURITUS
     Route: 048
     Dates: start: 20051230
  7. TYLENOL (CAPLET) [Concomitant]
     Indication: BACK PAIN
     Route: 048
     Dates: start: 20051102
  8. IOPIDINE [Concomitant]
     Indication: GLAUCOMA
  9. COSOPT [Concomitant]
     Indication: GLAUCOMA
  10. PILOCARPINE [Concomitant]
     Indication: GLAUCOMA
  11. PREVACID [Concomitant]
     Indication: PROPHYLAXIS
     Route: 048
     Dates: start: 20040101
  12. IBUPROFEN [Concomitant]
     Indication: BACK PAIN
     Route: 048
  13. PERCOCET [Concomitant]
     Indication: BACK PAIN
  14. OXYCONTIN [Concomitant]
     Indication: BACK PAIN
  15. COMPAZINE [Concomitant]
     Indication: NAUSEA

REACTIONS (2)
  - LUNG INFILTRATION [None]
  - PULMONARY HAEMORRHAGE [None]
